FAERS Safety Report 14402535 (Version 2)
Quarter: 2018Q1

REPORT INFORMATION
  Report Type: Spontaneous
  Country: CA (occurrence: CA)
  Receive Date: 20180117
  Receipt Date: 20180202
  Transmission Date: 20180509
  Serious: Yes (Other)
  Sender: FDA-Public Use
  Company Number: CA-IPSEN BIOPHARMACEUTICALS, INC.-2018-00963

PATIENT
  Sex: Female
  Weight: 67 kg

DRUGS (9)
  1. AVASTIN [Suspect]
     Active Substance: BEVACIZUMAB
     Indication: COLON CANCER METASTATIC
     Route: 050
  2. OXALIPLATIN. [Suspect]
     Active Substance: OXALIPLATIN
     Indication: COLORECTAL CANCER METASTATIC
  3. ONIVYDE [Suspect]
     Active Substance: IRINOTECAN HYDROCHLORIDE
     Indication: OFF LABEL USE
  4. ONIVYDE [Suspect]
     Active Substance: IRINOTECAN HYDROCHLORIDE
     Indication: COLORECTAL CANCER METASTATIC
     Dosage: NOT REPORTED
     Route: 050
  5. AVASTIN [Suspect]
     Active Substance: BEVACIZUMAB
     Route: 050
  6. DEXAMETHASONE. [Concomitant]
     Active Substance: DEXAMETHASONE
  7. FLUOROURACIL. [Suspect]
     Active Substance: FLUOROURACIL
     Indication: COLORECTAL CANCER METASTATIC
  8. LEUCOVORIN. [Suspect]
     Active Substance: LEUCOVORIN
     Indication: COLORECTAL CANCER METASTATIC
  9. ZANTAC [Concomitant]
     Active Substance: RANITIDINE HYDROCHLORIDE

REACTIONS (6)
  - Drug ineffective for unapproved indication [Unknown]
  - Neoplasm progression [Not Recovered/Not Resolved]
  - Off label use [Unknown]
  - Gastrooesophageal reflux disease [Not Recovered/Not Resolved]
  - Therapy non-responder [Unknown]
  - Infusion related reaction [Not Recovered/Not Resolved]
